FAERS Safety Report 4938524-0 (Version None)
Quarter: 2006Q1

REPORT INFORMATION
  Report Type: 
  Country: None (occurrence: None)
  Receive Date: 20060302
  Receipt Date: 20060227
  Transmission Date: 20060701
  Serious: Yes (Other)
  Sender: FDA-Public Use
  Company Number: THQ2005A00807

PATIENT
  Age: 70 Year
  Sex: 0

DRUGS (2)
  1. LEUPROLIDE ACETATE [Suspect]
     Dosage: 22.5 MG (22.5 MG, 1 IN 1 M), INTRAMUSCULAR
     Route: 030
     Dates: start: 20041012, end: 20050110
  2. ZOLEDRONIC ACID [Suspect]
     Dosage: (4.00 MG/100ML), INTRAVENOUS
     Route: 042
     Dates: start: 20041018, end: 20050818

REACTIONS (2)
  - GINGIVAL PAIN [None]
  - OSTEONECROSIS [None]
